FAERS Safety Report 9837093 (Version 2)
Quarter: 2014Q1

REPORT INFORMATION
  Report Type: Spontaneous
  Country: US (occurrence: US)
  Receive Date: 20140123
  Receipt Date: 20140123
  Transmission Date: 20141002
  Serious: Yes (Hospitalization)
  Sender: FDA-Public Use
  Company Number: US-SA-2013SA112970

PATIENT
  Age: 81 Year
  Sex: Male
  Weight: 93.3 kg

DRUGS (12)
  1. CEREZYME [Suspect]
     Indication: GAUCHER^S DISEASE
     Dosage: DOSE : 30 U/KG DOSE:30 UNIT(S)/KILOGRAM BODYWEIGHT
     Route: 042
  2. CEREZYME [Suspect]
     Indication: GAUCHER^S DISEASE
     Dosage: DOSE:30 UNIT(S)/KILOGRAM BODYWEIGHT
     Route: 042
     Dates: start: 201308
  3. CETIRIZINE [Concomitant]
     Dates: start: 1978
  4. GLIPIZIDE [Concomitant]
  5. AMLODIPINE [Concomitant]
  6. FOLIC ACID [Concomitant]
  7. LISINOPRIL [Concomitant]
  8. OMEPRAZOLE [Concomitant]
  9. ATENOLOL [Concomitant]
  10. GABAPENTIN [Concomitant]
  11. CENTRUM SILVER [Concomitant]
  12. ALLOPURINOL [Concomitant]

REACTIONS (3)
  - Hip fracture [Not Recovered/Not Resolved]
  - Fall [Unknown]
  - Pain in extremity [Unknown]
